FAERS Safety Report 5963278-9 (Version None)
Quarter: 2008Q4

REPORT INFORMATION
  Report Type: 
  Country: None (occurrence: None)
  Receive Date: 20081120
  Receipt Date: 20081120
  Transmission Date: 20090506
  Serious: No
  Sender: FDA-Public Use
  Company Number: None

PATIENT
  Age: 68 Year
  Sex: Male
  Weight: 107.5 kg

DRUGS (1)
  1. DIGOXIN [Suspect]
     Dosage: 0.25 MG EVERY DAY PO
     Route: 048
     Dates: start: 20080718, end: 20081007

REACTIONS (2)
  - TACHYARRHYTHMIA [None]
  - TACHYCARDIA [None]
